FAERS Safety Report 4866180-9 (Version None)
Quarter: 2005Q4

REPORT INFORMATION
  Report Type: 
  Country: None (occurrence: None)
  Receive Date: 20051227
  Receipt Date: 20051216
  Transmission Date: 20060501
  Serious: Yes (Other)
  Sender: FDA-Public Use
  Company Number: DE-BRISTOL-MYERS SQUIBB COMPANY-13222252

PATIENT
  Sex: Male

DRUGS (1)
  1. KARVEA TABS 300 MG [Suspect]

REACTIONS (1)
  - CEREBRAL DISORDER [None]
